FAERS Safety Report 11805123 (Version 1)
Quarter: 2015Q4

REPORT INFORMATION
  Report Type: Spontaneous
  Country: US (occurrence: US)
  Receive Date: 20151206
  Receipt Date: 20151206
  Transmission Date: 20160305
  Serious: No
  Sender: FDA-Public Use
  Company Number: US-AMGEN-USASP2015123558

PATIENT
  Sex: Female

DRUGS (1)
  1. ENBREL [Suspect]
     Active Substance: ETANERCEPT
     Indication: RHEUMATOID ARTHRITIS
     Dosage: UNK UNK, UNK
     Route: 065
     Dates: start: 2013, end: 2015

REACTIONS (5)
  - Aspartate aminotransferase abnormal [Unknown]
  - Malaise [Unknown]
  - Alanine aminotransferase abnormal [Unknown]
  - Nasopharyngitis [Unknown]
  - Enzyme level increased [Unknown]

NARRATIVE: CASE EVENT DATE: 2015
